FAERS Safety Report 12781073 (Version 3)
Quarter: 2017Q1

REPORT INFORMATION
  Report Type: Spontaneous
  Country: JP (occurrence: JP)
  Receive Date: 20160926
  Receipt Date: 20170104
  Transmission Date: 20170428
  Serious: Yes (Hospitalization)
  Sender: FDA-Public Use
  Company Number: JP-ELI_LILLY_AND_COMPANY-JP201609007499

PATIENT
  Age: 78 Year
  Sex: Female
  Weight: 28 kg

DRUGS (5)
  1. DEPAS [Concomitant]
     Active Substance: ETIZOLAM
  2. VITAMEDIN                          /00176001/ [Concomitant]
  3. CLARITH [Concomitant]
     Active Substance: CLARITHROMYCIN
  4. PROMAC                             /01312301/ [Concomitant]
     Active Substance: POLAPREZINC
  5. CYMBALTA [Suspect]
     Active Substance: DULOXETINE HYDROCHLORIDE
     Indication: BACK PAIN
     Dosage: 20 MG, QD
     Route: 048
     Dates: start: 20160717, end: 20160718

REACTIONS (3)
  - Abdominal pain upper [Unknown]
  - Inappropriate antidiuretic hormone secretion [Recovering/Resolving]
  - Glaucoma [Recovering/Resolving]

NARRATIVE: CASE EVENT DATE: 20160717
